FAERS Safety Report 15426067 (Version 1)
Quarter: 2018Q3

REPORT INFORMATION
  Report Type: Spontaneous
  Country: IT (occurrence: IT)
  Receive Date: 20180925
  Receipt Date: 20180925
  Transmission Date: 20181010
  Serious: Yes (Hospitalization)
  Sender: FDA-Public Use
  Company Number: IT-PFIZER INC-2018380160

PATIENT
  Age: 75 Year
  Sex: Female

DRUGS (9)
  1. XALKORI [Suspect]
     Active Substance: CRIZOTINIB
     Dosage: 200 MG, 2X/DAY (EVERY 12 HOURS)
     Route: 048
     Dates: end: 20180311
  2. ALLOPURINOLO MOLTENI [Concomitant]
     Dosage: 150 MG, UNK
     Route: 048
  3. ATORVASTATINA EG [Concomitant]
     Dosage: 10 MG, UNK
     Route: 048
  4. TOVANOR BREEZHALER [Concomitant]
     Active Substance: GLYCOPYRROLATE
     Dosage: UNK
  5. LASIX [Concomitant]
     Active Substance: FUROSEMIDE
     Dosage: 50 MG, UNK
     Route: 048
  6. CARDICOR [Concomitant]
     Active Substance: BISOPROLOL
     Dosage: 2.5 MG, UNK
     Route: 048
  7. PEPTAZOL [LANSOPRAZOLE] [Concomitant]
     Dosage: 20 MG, UNK
     Route: 048
  8. CARDURA [Concomitant]
     Active Substance: DOXAZOSIN MESYLATE
     Dosage: 2 MG, UNK
     Route: 048
  9. XALKORI [Suspect]
     Active Substance: CRIZOTINIB
     Indication: LUNG ADENOCARCINOMA STAGE IV
     Dosage: 400 MG, DAILY(200 MG EVERY 12 HOURS)
     Route: 048
     Dates: start: 20180216

REACTIONS (4)
  - Blood creatinine increased [Unknown]
  - Asthenia [Unknown]
  - Fluid retention [Unknown]
  - Dyspnoea [Unknown]

NARRATIVE: CASE EVENT DATE: 20180311
